FAERS Safety Report 5484040-X (Version None)
Quarter: 2007Q4

REPORT INFORMATION
  Report Type: 
  Country: None (occurrence: None)
  Receive Date: 20071012
  Receipt Date: 20071001
  Transmission Date: 20080405
  Serious: Yes (Hospitalization)
  Sender: FDA-Public Use
  Company Number: US-ROCHE-502018

PATIENT
  Age: 38 Year
  Sex: Female
  Weight: 103.4 kg

DRUGS (3)
  1. XELODA [Suspect]
     Indication: BREAST CANCER
     Dosage: DOSAGE FORM IS ^PILLS^ AND REPORTED AS '1 GRAM/M2 TWICE DAILY'
     Route: 048
     Dates: start: 20070530, end: 20070606
  2. TYKERB [Suspect]
     Indication: BREAST CANCER
     Dosage: REPORTED AS '1250'
     Route: 048
     Dates: start: 20070530, end: 20070606
  3. DILANTIN [Concomitant]
     Route: 048

REACTIONS (12)
  - ANOREXIA [None]
  - ASTHENIA [None]
  - CYSTITIS [None]
  - DEPRESSION [None]
  - DIARRHOEA [None]
  - DYSPHAGIA [None]
  - PALMAR-PLANTAR ERYTHRODYSAESTHESIA SYNDROME [None]
  - PYREXIA [None]
  - STOMATITIS [None]
  - THROAT TIGHTNESS [None]
  - THROMBOSIS [None]
  - TINNITUS [None]
